FAERS Safety Report 22060079 (Version 1)
Quarter: 2023Q1

REPORT INFORMATION
  Report Type: Spontaneous
  Country: US (occurrence: US)
  Receive Date: 20230303
  Receipt Date: 20230303
  Transmission Date: 20230418
  Serious: No
  Sender: FDA-Public Use
  Company Number: US-PFIZER INC-202300086034

PATIENT
  Age: 83 Year

DRUGS (1)
  1. PAXLOVID [Suspect]
     Active Substance: NIRMATRELVIR\RITONAVIR
     Indication: COVID-19 treatment
     Dosage: UNK (300-100 MG)
     Route: 048
     Dates: start: 202302, end: 202302

REACTIONS (3)
  - Hypertension [Recovering/Resolving]
  - Pollakiuria [Unknown]
  - Urine output increased [Unknown]

NARRATIVE: CASE EVENT DATE: 20230201
